FAERS Safety Report 5836769-9 (Version None)
Quarter: 2008Q3

REPORT INFORMATION
  Report Type: 
  Country: None (occurrence: None)
  Receive Date: 20080806
  Receipt Date: 20080806
  Transmission Date: 20090109
  Serious: Yes (Hospitalization, Other)
  Sender: FDA-Public Use
  Company Number: None

PATIENT
  Sex: Male
  Weight: 8.7 kg

DRUGS (1)
  1. METOCLOPRAMIDE [Suspect]
     Indication: GASTROOESOPHAGEAL REFLUX DISEASE
     Dosage: 1.5 MG TID PO
     Route: 048
     Dates: start: 20080712, end: 20080713

REACTIONS (5)
  - CONVULSION [None]
  - CRYING [None]
  - POSTURING [None]
  - TONIC CONVULSION [None]
  - UNRESPONSIVE TO STIMULI [None]
